FAERS Safety Report 7293936-8 (Version None)
Quarter: 2011Q1

REPORT INFORMATION
  Report Type: 
  Country: None (occurrence: None)
  Receive Date: 20110215
  Receipt Date: 20101124
  Transmission Date: 20110831
  Serious: Yes (Other)
  Sender: FDA-Public Use
  Company Number: GXKR2010BR13346

PATIENT
  Sex: Female

DRUGS (4)
  1. INFLEASEMABI [Concomitant]
  2. CALCIUM UNKNOWN [Suspect]
     Route: 048
  3. IBANDRONATE SODIUM [Concomitant]
  4. BONIVA [Concomitant]
     Dosage: 150 MG

REACTIONS (3)
  - ENDOSCOPY [None]
  - OESOPHAGITIS [None]
  - PAIN [None]
